FAERS Safety Report 9634481 (Version 1)
Quarter: 2013Q4

REPORT INFORMATION
  Report Type: Spontaneous
  Country: US (occurrence: US)
  Receive Date: 20131021
  Receipt Date: 20131021
  Transmission Date: 20140711
  Serious: No
  Sender: FDA-Public Use
  Company Number: US-PURDUE-USA-2013-0101029

PATIENT
  Sex: Female

DRUGS (2)
  1. BUTRANS [Suspect]
     Indication: WRIST FRACTURE
     Dosage: 10 MCG/HR, UNK
     Route: 062
  2. BUTRANS [Suspect]
     Indication: TENDON OPERATION
     Dosage: 20 MCG/HR, UNK
     Route: 062

REACTIONS (7)
  - Drug withdrawal syndrome [Unknown]
  - Muscle spasms [Unknown]
  - Pain [Unknown]
  - Drug ineffective [Unknown]
  - Drug effect decreased [Unknown]
  - Product adhesion issue [Unknown]
  - Product physical issue [Unknown]
